FAERS Safety Report 24595207 (Version 1)
Quarter: 2024Q4

REPORT INFORMATION
  Report Type: Spontaneous
  Country: US (occurrence: US)
  Receive Date: 20241108
  Receipt Date: 20241108
  Transmission Date: 20250115
  Serious: No
  Sender: BIONPHARMA INC.
  Company Number: US-Bion-014239

PATIENT

DRUGS (1)
  1. IBUPROFEN [Suspect]
     Active Substance: IBUPROFEN
     Indication: Muscle spasms

REACTIONS (1)
  - Drug ineffective [Not Recovered/Not Resolved]
